FAERS Safety Report 23111212 (Version 1)
Quarter: 2023Q4

REPORT INFORMATION
  Report Type: Spontaneous
  Country: JP (occurrence: JP)
  Receive Date: 20231026
  Receipt Date: 20231026
  Transmission Date: 20240110
  Serious: No
  Sender: FDA-Public Use
  Company Number: JP-JAZZ PHARMACEUTICALS-2021-JP-002739

PATIENT
  Age: 45 Year
  Sex: Male
  Weight: 69.7 kg

DRUGS (2)
  1. DEFITELIO [Suspect]
     Active Substance: DEFIBROTIDE SODIUM
     Indication: Venoocclusive liver disease
     Dosage: 25 MILLIGRAM/KILOGRAM, QD
     Route: 042
     Dates: start: 20210112, end: 20210128
  2. THROMBOMODULIN ALFA [Suspect]
     Active Substance: THROMBOMODULIN ALFA
     Indication: Product used for unknown indication
     Dosage: UNK
     Route: 042
     Dates: start: 20210122, end: 20210127

REACTIONS (2)
  - Faeces discoloured [Recovered/Resolved]
  - Abdominal pain [Recovered/Resolved]

NARRATIVE: CASE EVENT DATE: 20210128
